FAERS Safety Report 22111704 (Version 2)
Quarter: 2025Q2

REPORT INFORMATION
  Report Type: Spontaneous
  Country: FR (occurrence: FR)
  Receive Date: 20230318
  Receipt Date: 20250521
  Transmission Date: 20250717
  Serious: Yes (Other)
  Sender: AUROBINDO
  Company Number: FR-CHEPLA-2023002933

PATIENT
  Age: 83 Year
  Sex: Male

DRUGS (5)
  1. ACYCLOVIR [Suspect]
     Active Substance: ACYCLOVIR
     Indication: Product used for unknown indication
     Route: 065
  2. INTERFERON [Suspect]
     Active Substance: INTERFERON
     Indication: Polycythaemia vera
     Route: 065
  3. PIPOBROMAN [Suspect]
     Active Substance: PIPOBROMAN
     Indication: Polycythaemia vera
     Route: 065
  4. HYDROXYUREA [Suspect]
     Active Substance: HYDROXYUREA
     Indication: Polycythaemia vera
     Route: 065
  5. RUXOLITINIB [Suspect]
     Active Substance: RUXOLITINIB
     Indication: Polycythaemia vera
     Route: 065

REACTIONS (1)
  - Bone tuberculosis [Recovered/Resolved]
